FAERS Safety Report 5117173-8 (Version None)
Quarter: 2006Q3

REPORT INFORMATION
  Report Type: 
  Country: None (occurrence: None)
  Receive Date: 20060929
  Receipt Date: 20060922
  Transmission Date: 20061208
  Serious: Yes (Hospitalization)
  Sender: FDA-Public Use
  Company Number: US-SP-2006-02507

PATIENT
  Sex: Male

DRUGS (4)
  1. THERACYS [Suspect]
     Indication: BLADDER CANCER
     Route: 065
     Dates: start: 20060101
  2. VITAMIN B6 [Concomitant]
  3. RELAFEN [Concomitant]
  4. HYZAAR [Concomitant]

REACTIONS (4)
  - BOVINE TUBERCULOSIS [None]
  - DISSEMINATED TUBERCULOSIS [None]
  - GRANULOMA SKIN [None]
  - LIVER FUNCTION TEST ABNORMAL [None]
